FAERS Safety Report 22354574 (Version 1)
Quarter: 2023Q2

REPORT INFORMATION
  Report Type: Spontaneous
  Country: US (occurrence: US)
  Receive Date: 20230523
  Receipt Date: 20230523
  Transmission Date: 20230722
  Serious: Yes (Death, Hospitalization, Other)
  Sender: FDA-Public Use
  Company Number: US-AUROBINDO-AUR-APL-2023-038018

PATIENT
  Age: 30 Year
  Sex: Male

DRUGS (1)
  1. CLOFARABINE [Suspect]
     Active Substance: CLOFARABINE
     Indication: Acute lymphocytic leukaemia
     Dosage: 40 MILLIGRAM/SQ. METER
     Route: 065

REACTIONS (2)
  - Acute kidney injury [Fatal]
  - Off label use [Unknown]
